FAERS Safety Report 5990714-4 (Version None)
Quarter: 2008Q4

REPORT INFORMATION
  Report Type: 
  Country: None (occurrence: None)
  Receive Date: 20081211
  Receipt Date: 20081208
  Transmission Date: 20090506
  Serious: Yes (Other)
  Sender: FDA-Public Use
  Company Number: PHHY2008DE31107

PATIENT
  Sex: Male

DRUGS (8)
  1. RASILEZ [Suspect]
     Indication: CARDIAC FAILURE
     Dosage: 75 MG, QD
     Dates: start: 20081101
  2. RASILEZ [Suspect]
     Dosage: 150 MG, QD
  3. TRIAMTERENE AND HYDROCHLOROTHIAZIDE [Concomitant]
     Dosage: 20-40 MG/DAY
     Dates: end: 20081101
  4. FUROSEMIDE [Concomitant]
     Dosage: 80 MG, QD
     Dates: start: 20081101, end: 20081207
  5. CARVEDILOL [Concomitant]
     Dosage: UNK
  6. DIGITALIS TAB [Concomitant]
     Dosage: UNK
  7. THROMBAREDUCT [Concomitant]
     Dosage: UNK
  8. ZYLORIC [Concomitant]
     Dosage: UNK

REACTIONS (6)
  - ARRHYTHMIA [None]
  - ATRIAL FIBRILLATION [None]
  - CONDITION AGGRAVATED [None]
  - MICTURITION DISORDER [None]
  - OEDEMA PERIPHERAL [None]
  - TACHYARRHYTHMIA [None]
